FAERS Safety Report 19752409 (Version 1)
Quarter: 2021Q3

REPORT INFORMATION
  Report Type: Report from Study
  Country: AR (occurrence: AR)
  Receive Date: 20210827
  Receipt Date: 20210827
  Transmission Date: 20211014
  Serious: No
  Sender: FDA-Public Use
  Company Number: AR-UCBSA-2021040684

PATIENT
  Age: 56 Year
  Sex: Female

DRUGS (2)
  1. ROTIGOTINE [Suspect]
     Active Substance: ROTIGOTINE
     Indication: PARKINSON^S DISEASE
     Dosage: 6 MILLIGRAM, ONCE DAILY (QD)
     Route: 062
     Dates: start: 20210623, end: 20210722
  2. ROTIGOTINE [Suspect]
     Active Substance: ROTIGOTINE
     Dosage: 10 MILLIGRAM, ONCE DAILY (QD)
     Route: 062
     Dates: start: 20210723

REACTIONS (6)
  - Abdominal discomfort [Recovering/Resolving]
  - Nausea [Recovering/Resolving]
  - Drug ineffective [Unknown]
  - Expired product administered [Unknown]
  - Ear discomfort [Recovering/Resolving]
  - Product adhesion issue [Unknown]

NARRATIVE: CASE EVENT DATE: 20210723
